FAERS Safety Report 7297330-5 (Version None)
Quarter: 2011Q1

REPORT INFORMATION
  Report Type: 
  Country: None (occurrence: None)
  Receive Date: 20110216
  Receipt Date: 20110211
  Transmission Date: 20110831
  Serious: Yes (Other)
  Sender: FDA-Public Use
  Company Number: FR-PFIZER INC-2011030724

PATIENT
  Age: 37 Year
  Sex: Female

DRUGS (2)
  1. CHAMPIX [Suspect]
     Indication: SMOKING CESSATION THERAPY
     Dosage: 1 MG, 2X/DAY
     Dates: start: 20100101
  2. PREVISCAN [Concomitant]

REACTIONS (2)
  - PLATELET COUNT DECREASED [None]
  - INTERNATIONAL NORMALISED RATIO DECREASED [None]
